FAERS Safety Report 6279820-7 (Version None)
Quarter: 2009Q3

REPORT INFORMATION
  Report Type: 
  Country: None (occurrence: None)
  Receive Date: 20090721
  Receipt Date: 20090708
  Transmission Date: 20100115
  Serious: Yes (Hospitalization)
  Sender: FDA-Public Use
  Company Number: 2009-199649-NL

PATIENT
  Sex: Female

DRUGS (1)
  1. ETONOGESTREL [Suspect]
     Dates: end: 20070101

REACTIONS (4)
  - BORDERLINE OVARIAN TUMOUR [None]
  - DEVICE MIGRATION [None]
  - IMPLANT SITE INFECTION [None]
  - PAIN IN EXTREMITY [None]
